FAERS Safety Report 25854772 (Version 1)
Quarter: 2025Q3

REPORT INFORMATION
  Report Type: Spontaneous
  Country: JP (occurrence: JP)
  Receive Date: 20250927
  Receipt Date: 20250927
  Transmission Date: 20251020
  Serious: Yes (Death)
  Sender: SANOFI AVENTIS
  Company Number: JP-MEIJISEIKA-202505524_P_1

PATIENT

DRUGS (1)
  1. REZUROCK [Suspect]
     Active Substance: BELUMOSUDIL
     Indication: Obliterative bronchiolitis
     Route: 048

REACTIONS (1)
  - Infection [Fatal]
